FAERS Safety Report 7961830-2 (Version None)
Quarter: 2011Q4

REPORT INFORMATION
  Report Type: 
  Country: None (occurrence: None)
  Receive Date: 20111207
  Receipt Date: 20111207
  Transmission Date: 20120403
  Serious: Yes (Hospitalization)
  Sender: FDA-Public Use
  Company Number: None

PATIENT
  Sex: Female
  Weight: 52.163 kg

DRUGS (2)
  1. MUCINEX DM [Suspect]
     Indication: SINUS CONGESTION
     Dosage: 1 TABLET
     Route: 048
     Dates: start: 20111103, end: 20111103
  2. MUCINEX DM [Suspect]
     Indication: COUGH
     Dosage: 1 TABLET
     Route: 048
     Dates: start: 20111103, end: 20111103

REACTIONS (5)
  - DIZZINESS [None]
  - CONVULSION [None]
  - CATATONIA [None]
  - DISORIENTATION [None]
  - NAUSEA [None]
